FAERS Safety Report 8516962-7 (Version None)
Quarter: 2012Q3

REPORT INFORMATION
  Report Type: 
  Country: None (occurrence: None)
  Receive Date: 20120718
  Receipt Date: 20120709
  Transmission Date: 20120928
  Serious: Yes (Hospitalization)
  Sender: FDA-Public Use
  Company Number: ES-JNJFOC-20120704752

PATIENT
  Age: 65 Year
  Sex: Female

DRUGS (7)
  1. OMEPRAZOLE [Concomitant]
  2. METHOTREXATE [Concomitant]
  3. REMICADE [Suspect]
     Indication: RHEUMATOID ARTHRITIS
     Dosage: ^3^
     Route: 042
     Dates: start: 20010213
  4. FOLIC ACID [Concomitant]
  5. CALCIUM W/VITAMIN D NOS [Concomitant]
  6. GLUCOCORTICOIDS [Concomitant]
  7. BISPHOSPHONATES [Concomitant]

REACTIONS (1)
  - PNEUMONIA [None]
